FAERS Safety Report 12443883 (Version 1)
Quarter: 2016Q2

REPORT INFORMATION
  Report Type: Spontaneous
  Country: US (occurrence: US)
  Receive Date: 20160607
  Receipt Date: 20160607
  Transmission Date: 20160815
  Serious: No
  Sender: FDA-Public Use
  Company Number: US-SA-2016SA044781

PATIENT
  Age: 60 Year
  Sex: Male

DRUGS (4)
  1. LANTUS SOLOSTAR [Concomitant]
     Active Substance: INSULIN GLARGINE
     Dates: start: 2015
  2. BYETTA [Concomitant]
     Active Substance: EXENATIDE
  3. VICTOZA [Concomitant]
     Active Substance: LIRAGLUTIDE
  4. TOUJEO [Suspect]
     Active Substance: INSULIN GLARGINE
     Indication: DIABETES MELLITUS
     Dosage: DOSE:20 UNIT(S)
     Route: 065
     Dates: start: 20160101

REACTIONS (5)
  - Pharyngeal disorder [Unknown]
  - Abdominal discomfort [Unknown]
  - Respiratory rate increased [Unknown]
  - Hyperhidrosis [Unknown]
  - Chest discomfort [Unknown]
